FAERS Safety Report 21391342 (Version 1)
Quarter: 2022Q3

REPORT INFORMATION
  Report Type: Spontaneous
  Country: US (occurrence: US)
  Receive Date: 20220929
  Receipt Date: 20220929
  Transmission Date: 20221027
  Serious: No
  Sender: FDA-Public Use
  Company Number: US-BAYER-2022A133960

PATIENT
  Age: 53 Year
  Sex: Male

DRUGS (1)
  1. NUBEQA [Suspect]
     Active Substance: DAROLUTAMIDE
     Dosage: 600 MG, BID
     Dates: start: 20220924

REACTIONS (5)
  - Groin pain [Not Recovered/Not Resolved]
  - Prostatic pain [Not Recovered/Not Resolved]
  - Decreased appetite [None]
  - Incorrect dose administered [None]
  - Intentional product misuse [None]

NARRATIVE: CASE EVENT DATE: 20220925
